FAERS Safety Report 13370241 (Version 2)
Quarter: 2019Q1

REPORT INFORMATION
  Report Type: Spontaneous
  Country: US (occurrence: US)
  Receive Date: 20170324
  Receipt Date: 20190205
  Transmission Date: 20190417
  Serious: No
  Sender: FDA-Public Use
  Company Number: US-ROCHE-1288945

PATIENT
  Sex: Female

DRUGS (9)
  1. RANITIDINE. [Concomitant]
     Active Substance: RANITIDINE
  2. DULOXETINE. [Concomitant]
     Active Substance: DULOXETINE
  3. ALBUTEROL SULFATE. [Concomitant]
     Active Substance: ALBUTEROL SULFATE
  4. XOLAIR [Suspect]
     Active Substance: OMALIZUMAB
     Dosage: 150*2
     Route: 058
  5. XOLAIR [Suspect]
     Active Substance: OMALIZUMAB
     Indication: URTICARIA
     Route: 058
     Dates: start: 201306
  6. FLUTICASONE PROPIONATE. [Concomitant]
     Active Substance: FLUTICASONE PROPIONATE
  7. ZIAC (UNITED STATES) [Concomitant]
     Dosage: 10/6.25 MG
     Route: 048
  8. HYDROCHLOROTHIAZIDE. [Concomitant]
     Active Substance: HYDROCHLOROTHIAZIDE
  9. XYZAL [Concomitant]
     Active Substance: LEVOCETIRIZINE DIHYDROCHLORIDE
     Dosage: AS NEEDED
     Route: 048

REACTIONS (13)
  - Alopecia [Not Recovered/Not Resolved]
  - Lower respiratory tract congestion [Unknown]
  - Bronchitis [Unknown]
  - Dizziness [Unknown]
  - Nausea [Unknown]
  - Headache [Unknown]
  - Malaise [Unknown]
  - Sinus disorder [Unknown]
  - Influenza like illness [Unknown]
  - Vision blurred [Unknown]
  - Asthenia [Unknown]
  - Urticaria [Unknown]
  - Upper-airway cough syndrome [Unknown]
